FAERS Safety Report 13380450 (Version 1)
Quarter: 2017Q1

REPORT INFORMATION
  Report Type: Spontaneous
  Country: US (occurrence: US)
  Receive Date: 20170329
  Receipt Date: 20170329
  Transmission Date: 20170429
  Serious: Yes (Other)
  Sender: FDA-Public Use
  Company Number: US-ACS-000562

PATIENT
  Age: 55 Year
  Sex: Male
  Weight: 102.7 kg

DRUGS (1)
  1. CEFAZOLIN FOR INJECTION, 1G [Suspect]
     Active Substance: CEFAZOLIN
     Indication: BACTERAEMIA
     Route: 041
     Dates: start: 20170228, end: 20170302

REACTIONS (2)
  - Off label use [Unknown]
  - Drug ineffective [Not Recovered/Not Resolved]
